FAERS Safety Report 6128862-0 (Version None)
Quarter: 2009Q1

REPORT INFORMATION
  Report Type: 
  Country: None (occurrence: None)
  Receive Date: 20090320
  Receipt Date: 20090318
  Transmission Date: 20090719
  Serious: Yes (Hospitalization, Other)
  Sender: FDA-Public Use
  Company Number: 09-108

PATIENT
  Age: 62 Year
  Sex: Male

DRUGS (10)
  1. ALEVE [Suspect]
     Indication: ARTHRALGIA
     Dosage: 440-680 MG, DAILY, ORAL
     Route: 048
  2. ZANTAC [Concomitant]
  3. PRILOSEC OTC [Concomitant]
  4. PRAVACHOL [Concomitant]
  5. LASIX [Concomitant]
  6. CENTRUM SILVER [Concomitant]
  7. ATENOLOL [Concomitant]
  8. EQUATE ASPIRIN [Concomitant]
  9. AMLODIPINE [Concomitant]
  10. ALLOPURINOL [Concomitant]

REACTIONS (4)
  - ALANINE AMINOTRANSFERASE INCREASED [None]
  - BACK PAIN [None]
  - BLOOD CHOLESTEROL INCREASED [None]
  - CHEST PAIN [None]
